FAERS Safety Report 6975696-0 (Version None)
Quarter: 2010Q3

REPORT INFORMATION
  Report Type: 
  Country: None (occurrence: None)
  Receive Date: 20100910
  Receipt Date: 20090330
  Transmission Date: 20110219
  Serious: No
  Sender: FDA-Public Use
  Company Number: US-WYE-H08768309

PATIENT
  Sex: Female

DRUGS (2)
  1. PRISTIQ [Suspect]
     Indication: DEPRESSION
     Route: 048
     Dates: start: 20090326
  2. PROZAC [Suspect]
     Dosage: UNKNOWN

REACTIONS (7)
  - EYE IRRITATION [None]
  - EYE PRURITUS [None]
  - FEELING HOT [None]
  - FULL BLOOD COUNT ABNORMAL [None]
  - HEART RATE INCREASED [None]
  - PRURITUS [None]
  - SWOLLEN TONGUE [None]
